FAERS Safety Report 26100478 (Version 1)
Quarter: 2025Q4

REPORT INFORMATION
  Report Type: Spontaneous
  Country: US (occurrence: US)
  Receive Date: 20251128
  Receipt Date: 20251128
  Transmission Date: 20260118
  Serious: No
  Sender: Haleon PLC
  Company Number: US-HALEON-2275778

PATIENT
  Age: 48 Year
  Sex: Female

DRUGS (1)
  1. ALLI [Suspect]
     Active Substance: ORLISTAT
     Indication: Weight decreased
     Dosage: TAKING ONE AFTER EACH MEAL AND FOLLOWING THE INSTRUCTIONS EXACTLY
     Dates: start: 20251015, end: 20251115

REACTIONS (1)
  - Drug ineffective [Unknown]
